FAERS Safety Report 20421946 (Version 1)
Quarter: 2022Q1

REPORT INFORMATION
  Report Type: Spontaneous
  Country: US (occurrence: None)
  Receive Date: 20220203
  Receipt Date: 20220203
  Transmission Date: 20220423
  Serious: Yes (Other)
  Sender: FDA-Public Use
  Company Number: None

PATIENT
  Age: 78 Year
  Sex: Male
  Weight: 73.9 kg

DRUGS (13)
  1. LINEZOLID [Suspect]
     Active Substance: LINEZOLID
     Indication: Urinary tract infection enterococcal
     Dosage: FREQUENCY : TWICE A DAY;?
     Route: 048
     Dates: start: 20220131, end: 20220201
  2. silodosin 4mg PO daily [Concomitant]
  3. amlodipine 2.5mg PO daily [Concomitant]
  4. Lisinopril 20mg PO daily [Concomitant]
  5. finasteride 5mg PO daily [Concomitant]
  6. atenolol 25mg PO daily [Concomitant]
  7. clopidogrel 75mg PO daily [Concomitant]
  8. gemfibrozil 600mg PO BID before meals [Concomitant]
  9. rosuvastatin 20mg PO daily [Concomitant]
  10. nitroglycerin 0.4 mg SL PRN chest pain up to 3 doses [Concomitant]
  11. fish oil 1000mg - 2 caps PO daily [Concomitant]
  12. aspirin EC 81mg PO daily [Concomitant]
  13. multivitamin - 1 tab PO daily [Concomitant]

REACTIONS (3)
  - Dizziness [None]
  - Chest pain [None]
  - Insomnia [None]

NARRATIVE: CASE EVENT DATE: 20220201
